FAERS Safety Report 5868951-9 (Version None)
Quarter: 2008Q3

REPORT INFORMATION
  Report Type: 
  Country: None (occurrence: None)
  Receive Date: 20080903
  Receipt Date: 20080822
  Transmission Date: 20090109
  Serious: Yes (Death)
  Sender: FDA-Public Use
  Company Number: BR-ROCHE-578745

PATIENT
  Sex: Male
  Weight: 60 kg

DRUGS (6)
  1. CAPECITABINE [Suspect]
     Dosage: FREQUENCY REPORTED AS D1-14Q3W
     Route: 048
     Dates: start: 20080424, end: 20080707
  2. CAPECITABINE [Suspect]
     Dosage: FREQUENCY REPORTED AS D1-14Q3W
     Route: 048
     Dates: start: 20080711
  3. PLACEBO [Suspect]
     Dosage: FORMULATION REPORTED AS: INFUSION.
     Route: 042
     Dates: start: 20080424, end: 20080707
  4. PLACEBO [Suspect]
     Route: 042
     Dates: start: 20080711
  5. CISPLATIN [Suspect]
     Dosage: FORMULATION REPORTED AS: INFUSION.
     Route: 042
     Dates: start: 20080424, end: 20080707
  6. CISPLATIN [Suspect]
     Route: 042
     Dates: start: 20080711

REACTIONS (1)
  - DEATH [None]
